FAERS Safety Report 9640044 (Version 1)
Quarter: 2013Q4

REPORT INFORMATION
  Report Type: Spontaneous
  Country: FR (occurrence: FR)
  Receive Date: 20131023
  Receipt Date: 20131023
  Transmission Date: 20140711
  Serious: Yes (Other)
  Sender: FDA-Public Use
  Company Number: PHHY2013FR118373

PATIENT
  Sex: Female

DRUGS (2)
  1. TOBI PODHALER [Suspect]
     Dosage: UNK
  2. TOBI PODHALER [Suspect]
     Dosage: UNK

REACTIONS (2)
  - Renal failure [Unknown]
  - Blood creatine abnormal [Not Recovered/Not Resolved]
